FAERS Safety Report 4960260-5 (Version None)
Quarter: 2006Q2

REPORT INFORMATION
  Report Type: 
  Country: None (occurrence: None)
  Receive Date: 20060403
  Receipt Date: 20060322
  Transmission Date: 20061013
  Serious: Yes (Death)
  Sender: FDA-Public Use
  Company Number: US-JNJFOC-20060300242

PATIENT
  Sex: Male
  Weight: 120.2 kg

DRUGS (10)
  1. REMICADE [Suspect]
     Dosage: IN OFFICE
     Route: 042
  2. REMICADE [Suspect]
     Dosage: IN OFFICE
     Route: 042
  3. REMICADE [Suspect]
     Dosage: IN OFFICE
     Route: 042
  4. REMICADE [Suspect]
     Dosage: IN OFFICE
     Route: 042
  5. REMICADE [Suspect]
     Dosage: IN OFFICE
     Route: 042
  6. REMICADE [Suspect]
     Dosage: IN OFFICE
     Route: 042
  7. REMICADE [Suspect]
     Dosage: IN OFFICE
     Route: 042
  8. REMICADE [Suspect]
     Dosage: IN OFFICE
     Route: 042
  9. REMICADE [Suspect]
     Indication: CROHN'S DISEASE
     Dosage: FOR 1 TO 1 1/2 YEARS.  IN HOSPITAL
     Route: 042
  10. IMURAN [Concomitant]
     Indication: CROHN'S DISEASE

REACTIONS (4)
  - CORONARY ARTERY THROMBOSIS [None]
  - MUSCLE TIGHTNESS [None]
  - MYOCARDIAL INFARCTION [None]
  - PARAESTHESIA [None]
